FAERS Safety Report 9202655 (Version 1)
Quarter: 2013Q2

REPORT INFORMATION
  Report Type: Other
  Country: GB (occurrence: GB)
  Receive Date: 20130401
  Receipt Date: 20130401
  Transmission Date: 20140414
  Serious: Yes (Life-Threatening)
  Sender: FDA-Public Use
  Company Number: GB-WATSON-2013-05556

PATIENT
  Age: 86 Year
  Sex: Female

DRUGS (3)
  1. INDAPAMIDE (UNKNOWN) [Suspect]
     Indication: HYPERTENSION
     Dosage: 2.5 MG, UNKNOWN
     Route: 048
     Dates: start: 201210, end: 20130201
  2. CO-DYDRAMOL [Concomitant]
     Indication: SCIATICA
     Dosage: 10/500 MG, UNK
     Route: 065
  3. OLMESARTAN MEDOXOMIL [Concomitant]
     Indication: HYPERTENSION
     Dosage: PREDATED INDAPAMIDE
     Route: 065

REACTIONS (3)
  - Ataxia [Recovered/Resolved]
  - Decreased appetite [Recovered/Resolved]
  - Hyponatraemia [Recovered/Resolved]
